FAERS Safety Report 10166797 (Version 4)
Quarter: 2014Q3

REPORT INFORMATION
  Report Type: Report from Study
  Country: US (occurrence: None)
  Receive Date: 20140508
  Receipt Date: 20140807
  Transmission Date: 20150326
  Serious: Yes (Death)
  Sender: FDA-Public Use
  Company Number: 2014SGN00413

PATIENT
  Age: 75 Year
  Sex: Female
  Weight: 76.8 kg

DRUGS (8)
  1. BRENTUXIMAB VEDOTIN [Suspect]
     Active Substance: BRENTUXIMAB VEDOTIN
     Indication: CHRONIC MYELOID LEUKAEMIA
     Dosage: 1.2 MG/KG, QCYCLE, INTRAVENOUS
     Route: 042
     Dates: start: 20140402, end: 20140409
  2. SYNTHROID [Concomitant]
     Active Substance: LEVOTHYROXINE SODIUM
  3. POTASSIUM CHLORIDE. [Concomitant]
     Active Substance: POTASSIUM CHLORIDE
  4. CRESTOR [Concomitant]
     Active Substance: ROSUVASTATIN CALCIUM
  5. METOCLOPRAMIDE (METOCLOPRAMIDE HYDROCHLORIDE) [Concomitant]
  6. ARICEPT [Concomitant]
     Active Substance: DONEPEZIL HYDROCHLORIDE
  7. PANTOPRAZOLE (PANTOPRAZOLE) [Concomitant]
     Active Substance: PANTOPRAZOLE SODIUM
  8. FUROSEMIDE (FUROSEMIDE SODIUM) [Concomitant]

REACTIONS (22)
  - Hepatomegaly [None]
  - Platelet disorder [None]
  - Chronic myelomonocytic leukaemia [None]
  - Blood pressure diastolic decreased [None]
  - Tenderness [None]
  - Hepatic failure [None]
  - Gastrointestinal sounds abnormal [None]
  - Blood sodium increased [None]
  - Hepatosplenomegaly [None]
  - Urinary tract infection [None]
  - Systemic inflammatory response syndrome [None]
  - Pancytopenia [None]
  - Blood chloride increased [None]
  - Nephrolithiasis [None]
  - Renal cyst [None]
  - Renal tubular necrosis [None]
  - Hypotension [None]
  - Malignant neoplasm progression [None]
  - Renal failure [None]
  - Abdominal discomfort [None]
  - Unresponsive to stimuli [None]
  - Sepsis [None]

NARRATIVE: CASE EVENT DATE: 20140415
